FAERS Safety Report 5021075-5 (Version None)
Quarter: 2006Q2

REPORT INFORMATION
  Report Type: 
  Country: None (occurrence: None)
  Receive Date: 20060606
  Receipt Date: 20060606
  Transmission Date: 20061013
  Serious: Yes (Death)
  Sender: FDA-Public Use
  Company Number: None

PATIENT
  Age: 52 Year
  Sex: Female

DRUGS (2)
  1. SKIN [Suspect]
  2. MS TISSUE  -BONE, TENDON, FASCIA- [Suspect]

REACTIONS (6)
  - COMPLICATIONS OF TRANSPLANTED KIDNEY [None]
  - COMPLICATIONS OF TRANSPLANTED LIVER [None]
  - HEPATIC NEOPLASM MALIGNANT [None]
  - LUNG ADENOCARCINOMA [None]
  - METASTASES TO LIVER [None]
  - PHARMACEUTICAL PRODUCT COMPLAINT [None]
